FAERS Safety Report 7530423-3 (Version None)
Quarter: 2011Q2

REPORT INFORMATION
  Report Type: 
  Country: None (occurrence: None)
  Receive Date: 20110607
  Receipt Date: 20110527
  Transmission Date: 20111010
  Serious: Yes (Hospitalization, Other)
  Sender: FDA-Public Use
  Company Number: US-ASTRAZENECA-2011SE31758

PATIENT
  Age: 68 Year
  Sex: Male

DRUGS (2)
  1. PRILOSEC [Suspect]
     Indication: GASTROOESOPHAGEAL REFLUX DISEASE
     Route: 048
     Dates: start: 20100101
  2. NEXIUM [Suspect]
     Indication: GASTROOESOPHAGEAL REFLUX DISEASE
     Route: 048
     Dates: start: 20030101, end: 20100101

REACTIONS (12)
  - HERNIA [None]
  - BLOOD DISORDER [None]
  - RADIOTHERAPY [None]
  - DRUG DOSE OMISSION [None]
  - PROSTATE CANCER [None]
  - OSTEOARTHRITIS [None]
  - ERUCTATION [None]
  - NAUSEA [None]
  - DYSPEPSIA [None]
  - HAEMORRHOIDS [None]
  - ARTHRITIS [None]
  - DRUG INEFFECTIVE [None]
